FAERS Safety Report 9157227 (Version 1)
Quarter: 2013Q1

REPORT INFORMATION
  Report Type: Spontaneous
  Country: US (occurrence: US)
  Receive Date: 20130312
  Receipt Date: 20130312
  Transmission Date: 20140127
  Serious: No
  Sender: FDA-Public Use
  Company Number: US-BAYER-2013-026987

PATIENT
  Age: 33 Year
  Sex: Female
  Weight: 61.22 kg

DRUGS (11)
  1. BETASERON [Suspect]
     Indication: RELAPSING-REMITTING MULTIPLE SCLEROSIS
     Dosage: 0.3 MG, UNK
  2. IMITREX [Concomitant]
     Dosage: 50 MG, UNK
  3. QVAR AER [Concomitant]
     Dosage: 40 ?G, UNK
  4. XYZAL [Concomitant]
     Dosage: 5 MG, UNK
  5. GABAPENTIN [Concomitant]
     Dosage: 400 MG, UNK
  6. ZONISAMIDE [Concomitant]
     Dosage: 25 MG, UNK
  7. SINGULAIR [Concomitant]
     Dosage: 4 MG, UNK
  8. BACLOFEN [Concomitant]
     Dosage: 20 MG, UNK
  9. ZOLOFT [Concomitant]
     Dosage: 100 MG, UNK
  10. VITAMIN D [COLECALCIFEROL] [Concomitant]
     Dosage: 1000 U, UNK
  11. ALBUTEROL [Concomitant]
     Dosage: 90 ?G, UNK

REACTIONS (2)
  - Influenza like illness [Recovering/Resolving]
  - Depression [Recovering/Resolving]
